FAERS Safety Report 4279211-4 (Version None)
Quarter: 2004Q1

REPORT INFORMATION
  Report Type: 
  Country: None (occurrence: None)
  Receive Date: 20040123
  Receipt Date: 20040113
  Transmission Date: 20041129
  Serious: Yes (Other)
  Sender: FDA-Public Use
  Company Number: US-SHR-03-008276

PATIENT
  Age: 61 Year
  Sex: Male
  Weight: 74.8 kg

DRUGS (1)
  1. ULTRAVIST 300 [Suspect]
     Indication: COMPUTERISED TOMOGRAM
     Dosage: 100 ML, 1 DOSE (1.5 ML/SEC), INTRAVENOUS
     Route: 042
     Dates: start: 20030521, end: 20030521

REACTIONS (8)
  - BLOOD PRESSURE INCREASED [None]
  - DIZZINESS [None]
  - DYSPNOEA [None]
  - HEART RATE DECREASED [None]
  - HYPERHIDROSIS [None]
  - LOSS OF CONSCIOUSNESS [None]
  - NAUSEA [None]
  - PALLOR [None]
